FAERS Safety Report 5856554-1 (Version None)
Quarter: 2008Q3

REPORT INFORMATION
  Report Type: 
  Country: None (occurrence: None)
  Receive Date: 20080822
  Receipt Date: 20080822
  Transmission Date: 20090109
  Serious: Yes (Other)
  Sender: FDA-Public Use
  Company Number: None

PATIENT
  Age: 55 Year
  Sex: Female
  Weight: 90.7194 kg

DRUGS (1)
  1. ACTONEL [Suspect]
     Indication: OSTEOPENIA
     Dosage: 150 MG ONCE A MONTH
     Dates: start: 20080724

REACTIONS (10)
  - CHILLS [None]
  - DIARRHOEA [None]
  - DIZZINESS [None]
  - EYE PAIN [None]
  - HEADACHE [None]
  - HYPOPHAGIA [None]
  - INSOMNIA [None]
  - PHOTOPHOBIA [None]
  - PYREXIA [None]
  - VOMITING PROJECTILE [None]
